FAERS Safety Report 7168575-X (Version None)
Quarter: 2010Q4

REPORT INFORMATION
  Report Type: 
  Country: None (occurrence: None)
  Receive Date: 20101216
  Receipt Date: 20100122
  Transmission Date: 20110411
  Serious: No
  Sender: FDA-Public Use
  Company Number: US-AMGEN-TCS387597

PATIENT

DRUGS (2)
  1. ENBREL [Suspect]
     Indication: JUVENILE ARTHRITIS
     Dosage: UNK UNK, UNK
     Route: 065
     Dates: start: 20090827
  2. METHOTREXATE [Concomitant]
     Dosage: UNK UNK, UNK

REACTIONS (5)
  - HEADACHE [None]
  - INFLUENZA LIKE ILLNESS [None]
  - NAUSEA [None]
  - RASH PRURITIC [None]
  - WEIGHT DECREASED [None]
